FAERS Safety Report 8349862 (Version 2)
Quarter: 2013Q2

REPORT INFORMATION
  Report Type: Spontaneous
  Country: GB (occurrence: GB)
  Receive Date: 20120123
  Receipt Date: 20130607
  Transmission Date: 20140414
  Serious: Yes (Other)
  Sender: FDA-Public Use
  Company Number: PHFR2012GB000640

PATIENT
  Sex: Male

DRUGS (3)
  1. CLOZARIL [Suspect]
     Indication: SCHIZOPHRENIA
     Dosage: 12.5 MG, UNK
     Route: 048
     Dates: start: 20120111, end: 20120112
  2. CLOZARIL [Suspect]
     Dosage: UNK UKN, UNK
     Route: 048
     Dates: start: 20130605
  3. DEPIXOL [Concomitant]
     Dates: start: 20111229

REACTIONS (7)
  - Fall [Unknown]
  - Loss of consciousness [Unknown]
  - Disorientation [Unknown]
  - Contusion [Unknown]
  - Blood pressure decreased [Unknown]
  - Syncope [Unknown]
  - Urinary incontinence [Unknown]
